FAERS Safety Report 20834508 (Version 1)
Quarter: 2022Q2

REPORT INFORMATION
  Report Type: 
  Country: None (occurrence: None)
  Receive Date: 20220516
  Receipt Date: 20220516
  Transmission Date: 20220720
  Serious: No
  Sender: FDA-Public Use
  Company Number: ROCHE-2540803

PATIENT
  Age: 42 Year

DRUGS (3)
  1. OCREVUS [Suspect]
     Active Substance: OCRELIZUMAB
     Dosage: 300 MG AT DAY 0 AND 14, THEN 600 MG EVERY 6 MONTH
     Dates: start: 20180528
  2. PROMETRIUM [Concomitant]
     Active Substance: PROGESTERONE
  3. CANNABIS SATIVA SUBSP. INDICA TOP [Concomitant]
     Active Substance: CANNABIS SATIVA SUBSP. INDICA TOP

REACTIONS (8)
  - Cognitive disorder [None]
  - Memory impairment [None]
  - Fatigue [None]
  - General physical health deterioration [None]
  - Dizziness [None]
  - Balance disorder [None]
  - Insomnia [None]
  - SARS-CoV-2 test positive [None]

NARRATIVE: CASE EVENT DATE: 20220322
